FAERS Safety Report 17887849 (Version 1)
Quarter: 2020Q2

REPORT INFORMATION
  Report Type: Other
  Country: CA (occurrence: CA)
  Receive Date: 20200612
  Receipt Date: 20200612
  Transmission Date: 20200714
  Serious: Yes (Other)
  Sender: FDA-Public Use
  Company Number: CA-GLENMARK PHARMACEUTICALS-2020GMK048079

PATIENT

DRUGS (3)
  1. REMICADE [Suspect]
     Active Substance: INFLIXIMAB
     Indication: CROHN^S DISEASE
     Dosage: 10 MILLIGRAM/KILOGRAM, QW (1 EVERY 1 WEEK)
     Route: 042
  2. GABAPENTIN. [Suspect]
     Active Substance: GABAPENTIN
     Indication: PRODUCT USED FOR UNKNOWN INDICATION
     Dosage: UNK
     Route: 065
  3. REMICADE [Suspect]
     Active Substance: INFLIXIMAB
     Indication: CROHN^S DISEASE
     Dosage: 10 MILLIGRAM PER KILOGRAM, 1 EVERY 1 MONTH
     Route: 042

REACTIONS (8)
  - Stress [Unknown]
  - Herpes zoster [Unknown]
  - Nasopharyngitis [Unknown]
  - Abnormal weight gain [Unknown]
  - Crohn^s disease [Unknown]
  - Infected fistula [Unknown]
  - Therapeutic product effect decreased [Unknown]
  - Abnormal loss of weight [Unknown]
